FAERS Safety Report 18929368 (Version 1)
Quarter: 2021Q1

REPORT INFORMATION
  Report Type: Spontaneous
  Country: LT (occurrence: LT)
  Receive Date: 20210223
  Receipt Date: 20210223
  Transmission Date: 20210420
  Serious: Yes (Death, Hospitalization, Other)
  Sender: FDA-Public Use
  Company Number: LT-BRISTOL-MYERS SQUIBB COMPANY-BMS-2021-014606

PATIENT
  Age: 89 Year
  Sex: Female
  Weight: 80 kg

DRUGS (2)
  1. TORASEMID [Concomitant]
     Active Substance: TORSEMIDE
     Indication: CARDIAC FAILURE
     Dosage: DAILY DOSE UNKNOWN
     Route: 048
  2. WARFARIN SODIUM. [Suspect]
     Active Substance: WARFARIN SODIUM
     Indication: PRODUCT USED FOR UNKNOWN INDICATION
     Dosage: 5 MILLIGRAM INDICATED FOR ELECTROCARDIOSTIMULATOR (ECS) IMPLANTATION
     Route: 048
     Dates: start: 20210109, end: 20210123

REACTIONS (2)
  - Melaena [Fatal]
  - Urinary tract infection [Fatal]

NARRATIVE: CASE EVENT DATE: 20210123
